FAERS Safety Report 9178403 (Version 1)
Quarter: 2013Q1

REPORT INFORMATION
  Report Type: Spontaneous
  Country: US (occurrence: US)
  Receive Date: 20130321
  Receipt Date: 20130321
  Transmission Date: 20140127
  Serious: Yes (Hospitalization)
  Sender: FDA-Public Use
  Company Number: US-GILEAD-2013-0072102

PATIENT
  Sex: Female

DRUGS (10)
  1. LETAIRIS [Suspect]
     Indication: PULMONARY HYPERTENSION
     Dosage: 10 MG, QD
     Dates: start: 20110504
  2. TYLENOL /00020001/ [Concomitant]
     Indication: PAIN
  3. COUMADIN                           /00014802/ [Concomitant]
     Indication: COAGULOPATHY
  4. BUPROPION [Concomitant]
  5. LISINOPRIL [Concomitant]
  6. SIMVASTATIN [Concomitant]
  7. PRILOSEC                           /00661201/ [Concomitant]
  8. GLUCOSAMINE/CHONDROITIN            /01625901/ [Concomitant]
  9. FUROSEMIDE [Concomitant]
  10. MULTIVITAMINS, OTHER COMBINATIONS [Concomitant]

REACTIONS (3)
  - Cerebrovascular accident [Unknown]
  - Ocular hyperaemia [Unknown]
  - Dry eye [Unknown]
